FAERS Safety Report 9985981 (Version 2)
Quarter: 2014Q2

REPORT INFORMATION
  Report Type: Spontaneous
  Country: GB (occurrence: GB)
  Receive Date: 20140307
  Receipt Date: 20140502
  Transmission Date: 20141212
  Serious: Yes (Life-Threatening, Hospitalization)
  Sender: FDA-Public Use
  Company Number: GB-WATSON-2014-03775

PATIENT
  Age: 33 Year
  Sex: Female
  Weight: 76 kg

DRUGS (5)
  1. DESMOPRESSIN (UNKNOWN) [Suspect]
     Indication: HYPERTONIC BLADDER
     Dosage: 200 MICROGRAMS DAILY AT NIGHT
     Route: 048
     Dates: start: 20120717, end: 20131219
  2. FLUOXETINE [Concomitant]
     Indication: PRODUCT USED FOR UNKNOWN INDICATION
     Dosage: UNK
     Route: 065
  3. GABAPENTIN [Concomitant]
     Indication: PRODUCT USED FOR UNKNOWN INDICATION
     Dosage: UNK
     Route: 065
  4. PROPRANOLOL [Concomitant]
     Indication: PRODUCT USED FOR UNKNOWN INDICATION
     Dosage: UNK
     Route: 065
  5. SOLIFENACIN [Concomitant]
     Indication: PRODUCT USED FOR UNKNOWN INDICATION
     Dosage: UNK
     Route: 065

REACTIONS (3)
  - Convulsion [Recovered/Resolved]
  - Blood sodium abnormal [Recovered/Resolved]
  - Confusional state [Recovered/Resolved]
